FAERS Safety Report 14681227 (Version 1)
Quarter: 2018Q1

REPORT INFORMATION
  Report Type: Spontaneous
  Country: ES (occurrence: ES)
  Receive Date: 20180326
  Receipt Date: 20180326
  Transmission Date: 20180509
  Serious: Yes (Hospitalization)
  Sender: FDA-Public Use
  Company Number: ES-TEVA-2018-ES-872198

PATIENT
  Age: 67 Year
  Sex: Female

DRUGS (11)
  1. RISPERIDONE. [Suspect]
     Active Substance: RISPERIDONE
     Indication: HALLUCINATION, AUDITORY
     Dosage: 6 MILLIGRAM DAILY;
     Route: 048
  2. QUETIAPINE. [Suspect]
     Active Substance: QUETIAPINE
     Indication: HALLUCINATION, VISUAL
  3. CLOMIPRAMINE [Concomitant]
     Active Substance: CLOMIPRAMINE
     Indication: PSYCHOTIC SYMPTOM
  4. RISPERIDONE. [Suspect]
     Active Substance: RISPERIDONE
     Indication: HALLUCINATION, VISUAL
  5. RISPERIDONE. [Suspect]
     Active Substance: RISPERIDONE
     Indication: DELUSION
  6. LITHIUM. [Suspect]
     Active Substance: LITHIUM
     Indication: HALLUCINATION, VISUAL
  7. QUETIAPINE. [Suspect]
     Active Substance: QUETIAPINE
     Indication: DELUSION
     Dosage: 100 MILLIGRAM DAILY;
     Route: 048
  8. LITHIUM. [Suspect]
     Active Substance: LITHIUM
     Indication: DELUSION
     Dosage: 400 MILLIGRAM DAILY;
     Route: 048
  9. LITHIUM. [Suspect]
     Active Substance: LITHIUM
     Indication: HALLUCINATION, AUDITORY
  10. CLOMIPRAMINE [Concomitant]
     Active Substance: CLOMIPRAMINE
     Indication: DEPRESSION
     Dosage: 225 MILLIGRAM DAILY;
     Route: 048
  11. QUETIAPINE. [Suspect]
     Active Substance: QUETIAPINE
     Indication: HALLUCINATION, AUDITORY

REACTIONS (2)
  - Neuroleptic malignant syndrome [Recovering/Resolving]
  - Amnesia [Unknown]

NARRATIVE: CASE EVENT DATE: 20170310
